FAERS Safety Report 13872002 (Version 1)
Quarter: 2017Q3

REPORT INFORMATION
  Report Type: Spontaneous
  Country: US (occurrence: US)
  Receive Date: 20170816
  Receipt Date: 20170816
  Transmission Date: 20171127
  Serious: Yes (Hospitalization, Other)
  Sender: FDA-Public Use
  Company Number: US-SAOL THERAPEUTICS-2017SAO01307

PATIENT

DRUGS (6)
  1. BACLOFEN. [Suspect]
     Active Substance: BACLOFEN
     Dosage: UNK
     Route: 037
     Dates: start: 201406
  2. TOPAMAX [Suspect]
     Active Substance: TOPIRAMATE
  3. AMPYRA [Suspect]
     Active Substance: DALFAMPRIDINE
  4. TECFIDERA [Suspect]
     Active Substance: DIMETHYL FUMARATE
     Dosage: UNK
     Dates: start: 201309
  5. 4-AMINOPYRIDINE [Suspect]
     Active Substance: DALFAMPRIDINE
     Dosage: UNK, 2X/DAY
  6. TYSABRI [Suspect]
     Active Substance: NATALIZUMAB
     Dosage: UNK
     Dates: end: 20150418

REACTIONS (7)
  - Mobility decreased [Unknown]
  - JC virus test positive [Unknown]
  - Ganglioglioma [Unknown]
  - Muscular weakness [Unknown]
  - Peripheral swelling [Unknown]
  - Feeling hot [Unknown]
  - Flushing [Unknown]

NARRATIVE: CASE EVENT DATE: 2014
